FAERS Safety Report 9372712 (Version 1)
Quarter: 2013Q2

REPORT INFORMATION
  Report Type: Report from Study
  Country: US (occurrence: US)
  Receive Date: 20130627
  Receipt Date: 20130627
  Transmission Date: 20140414
  Serious: Yes (Other)
  Sender: FDA-Public Use
  Company Number: US-MYLANLABS-2013S1006485

PATIENT
  Age: 25 Year
  Sex: Female

DRUGS (4)
  1. CLOZAPINE TABLETS [Suspect]
     Indication: SCHIZOPHRENIA
     Dates: end: 20130401
  2. CLOZAPINE TABLETS [Suspect]
     Indication: SCHIZOPHRENIA
     Dates: start: 20130422
  3. ABILIFY [Concomitant]
  4. DEPAKOTE [Concomitant]

REACTIONS (1)
  - Granulocytopenia [Recovered/Resolved]
